FAERS Safety Report 8448316-6 (Version None)
Quarter: 2012Q2

REPORT INFORMATION
  Report Type: 
  Country: None (occurrence: None)
  Receive Date: 20120619
  Receipt Date: 20120608
  Transmission Date: 20120825
  Serious: Yes (Life-Threatening, Hospitalization)
  Sender: FDA-Public Use
  Company Number: FR-ROCHE-1071034

PATIENT
  Age: 59 Year
  Sex: Female

DRUGS (1)
  1. XELODA [Suspect]
     Indication: RECTAL CANCER
     Dates: start: 20120507, end: 20120518

REACTIONS (9)
  - HAEMATOTOXICITY [None]
  - HYPOCALCAEMIA [None]
  - MUCOUS MEMBRANE DISORDER [None]
  - OVERDOSE [None]
  - HYPOKALAEMIA [None]
  - HYPOMAGNESAEMIA [None]
  - PANCYTOPENIA [None]
  - DIARRHOEA [None]
  - PROCTOCOLITIS [None]
